FAERS Safety Report 11819104 (Version 2)
Quarter: 2017Q1

REPORT INFORMATION
  Report Type: Spontaneous
  Country: US (occurrence: US)
  Receive Date: 20151210
  Receipt Date: 20170328
  Transmission Date: 20170428
  Serious: Yes (Other)
  Sender: FDA-Public Use
  Company Number: US-JNJFOC-20151111751

PATIENT
  Age: 18 Year
  Sex: Male

DRUGS (6)
  1. RISPERDAL [Suspect]
     Active Substance: RISPERIDONE
     Indication: PSYCHOTIC DISORDER
     Dosage: 0.25 MG TO 0.50 MG
     Route: 048
     Dates: start: 2011, end: 2013
  2. RISPERDAL [Suspect]
     Active Substance: RISPERIDONE
     Indication: SCHIZOPHRENIA
     Dosage: 0.25 MG TO 0.50 MG
     Route: 048
     Dates: start: 2011, end: 2013
  3. INVEGA SUSTENNA [Suspect]
     Active Substance: PALIPERIDONE PALMITATE
     Indication: PSYCHOTIC DISORDER
     Dosage: VARYING DOSES OF 156 MG TO 234 MG
     Route: 030
     Dates: start: 2012, end: 2014
  4. INVEGA SUSTENNA [Suspect]
     Active Substance: PALIPERIDONE PALMITATE
     Indication: ANXIETY
     Dosage: VARYING DOSES OF 156 MG TO 234 MG
     Route: 030
     Dates: start: 2012, end: 2014
  5. RISPERDAL [Suspect]
     Active Substance: RISPERIDONE
     Indication: ANXIETY
     Dosage: 0.25 MG TO 0.50 MG
     Route: 048
     Dates: start: 2011, end: 2013
  6. INVEGA SUSTENNA [Suspect]
     Active Substance: PALIPERIDONE PALMITATE
     Indication: SCHIZOPHRENIA
     Dosage: VARYING DOSES OF 156 MG TO 234 MG
     Route: 030
     Dates: start: 2012, end: 2014

REACTIONS (2)
  - Gynaecomastia [Unknown]
  - Obesity [Unknown]

NARRATIVE: CASE EVENT DATE: 201305
